FAERS Safety Report 4920961-1 (Version None)
Quarter: 2006Q1

REPORT INFORMATION
  Report Type: 
  Country: None (occurrence: None)
  Receive Date: 20060217
  Receipt Date: 20060214
  Transmission Date: 20060701
  Serious: Yes (Other)
  Sender: FDA-Public Use
  Company Number: NLWYE392914FEB06

PATIENT
  Age: 44 Year
  Sex: Female

DRUGS (3)
  1. EFEXOR 9VENLAFAXINE HYDROCHLORIDE, TABLET, 0) [Suspect]
     Indication: DEPRESSION
     Dosage: 75 + 225MG, 1X PER 1 DAY
     Dates: start: 20030423, end: 20030701
  2. EFEXOR 9VENLAFAXINE HYDROCHLORIDE, TABLET, 0) [Suspect]
     Indication: DEPRESSION
     Dosage: 75 + 225MG, 1X PER 1 DAY
     Dates: start: 20030801, end: 20040301
  3. EFEXOR 9VENLAFAXINE HYDROCHLORIDE, TABLET, 0) [Suspect]
     Indication: DEPRESSION
     Dosage: 75 + 225MG, 1X PER 1 DAY
     Dates: start: 20040301

REACTIONS (9)
  - ABDOMINAL PAIN [None]
  - BLOOD THYROID STIMULATING HORMONE DECREASED [None]
  - CARDIAC DISORDER [None]
  - CEREBROVASCULAR ACCIDENT [None]
  - LEUKOPENIA [None]
  - LYMPHOPENIA [None]
  - MUSCLE SPASMS [None]
  - NEUTROPHILIA [None]
  - RED BLOOD CELL COUNT DECREASED [None]
